FAERS Safety Report 4541201-1 (Version None)
Quarter: 2004Q4

REPORT INFORMATION
  Report Type: 
  Country: None (occurrence: None)
  Receive Date: 20041229
  Receipt Date: 20041220
  Transmission Date: 20050328
  Serious: Yes (Hospitalization, Other)
  Sender: FDA-Public Use
  Company Number: GB-ABBOTT-04P-167-0284444-00

PATIENT
  Age: 72 Year
  Sex: Female

DRUGS (8)
  1. FERROGRAD [Suspect]
     Indication: DRUG USE FOR UNKNOWN INDICATION
  2. FLUOXETINE [Suspect]
     Indication: DEPRESSION
     Route: 048
     Dates: end: 20000930
  3. MADOPAR [Suspect]
     Indication: DRUG USE FOR UNKNOWN INDICATION
  4. THYROXINE [Concomitant]
     Indication: HYPOTHYROIDISM
     Route: 048
  5. CO-BENELDOPA [Concomitant]
     Indication: PARKINSON'S DISEASE
     Dosage: 25/100
     Route: 048
  6. LEKOVIT CA [Concomitant]
     Indication: PROPHYLAXIS
     Route: 048
  7. TEMAZEPAM [Concomitant]
     Indication: SEDATION
     Route: 048
  8. ACETAMINOPHEN [Concomitant]
     Indication: PAIN
     Route: 048

REACTIONS (5)
  - FALL [None]
  - HYDROCEPHALUS [None]
  - HYPONATRAEMIA [None]
  - NORMAL PRESSURE HYDROCEPHALUS [None]
  - URINARY RETENTION [None]
